FAERS Safety Report 9478002 (Version 3)
Quarter: 2013Q3

REPORT INFORMATION
  Report Type: Report from Study
  Country: CA (occurrence: CA)
  Receive Date: 20130827
  Receipt Date: 20130906
  Transmission Date: 20140515
  Serious: Yes (Other)
  Sender: FDA-Public Use
  Company Number: CA-ABBOTT-13P-028-1128370-00

PATIENT
  Age: 32 Year
  Sex: Female
  Weight: 102 kg

DRUGS (3)
  1. HUMIRA [Suspect]
     Indication: CROHN^S DISEASE
     Route: 058
     Dates: start: 20120330, end: 20130627
  2. HUMIRA [Suspect]
     Route: 058
     Dates: start: 2013
  3. ESCITALOPRAM [Concomitant]

REACTIONS (2)
  - Abortion spontaneous [Unknown]
  - Haemorrhage [Not Recovered/Not Resolved]
